FAERS Safety Report 11518174 (Version 1)
Quarter: 2015Q3

REPORT INFORMATION
  Report Type: Spontaneous
  Country: JP (occurrence: JP)
  Receive Date: 20150917
  Receipt Date: 20150917
  Transmission Date: 20151125
  Serious: Yes (Hospitalization)
  Sender: FDA-Public Use
  Company Number: JP-BAYER-2015-417924

PATIENT
  Age: 75 Year
  Sex: Male

DRUGS (1)
  1. ADALAT-L [Suspect]
     Active Substance: NIFEDIPINE
     Dosage: DAILY DOSE 20 MG
     Route: 048

REACTIONS (4)
  - Nausea [None]
  - Palpitations [None]
  - Decreased appetite [None]
  - Hyperhidrosis [None]
